FAERS Safety Report 20822322 (Version 1)
Quarter: 2022Q2

REPORT INFORMATION
  Report Type: Spontaneous
  Country: IT (occurrence: IT)
  Receive Date: 20220512
  Receipt Date: 20220512
  Transmission Date: 20220720
  Serious: Yes (Hospitalization)
  Sender: FDA-Public Use
  Company Number: IT-MYLANLABS-2022M1034973

PATIENT
  Age: 81 Year
  Sex: Male

DRUGS (3)
  1. ABIRATERONE [Suspect]
     Active Substance: ABIRATERONE
     Indication: Prostate cancer
     Dosage: UNK, CYCLE (RECEIVED 60CYCLES)
     Route: 065
     Dates: start: 201308, end: 201807
  2. DOCETAXEL [Suspect]
     Active Substance: DOCETAXEL
     Indication: Prostate cancer
     Dosage: 75 MILLIGRAM/SQ. METER, Q3W, RECEIVED EIGHT CYCLES
     Route: 065
     Dates: start: 201111, end: 201204
  3. DOCETAXEL [Suspect]
     Active Substance: DOCETAXEL
     Dosage: 75 MILLIGRAM/SQ. METER CYCLE(RECEIVED EIGHT CYCLES)
     Route: 065
     Dates: start: 201210, end: 201303

REACTIONS (1)
  - Acute myeloid leukaemia [Unknown]
